FAERS Safety Report 9371740 (Version 5)
Quarter: 2014Q3

REPORT INFORMATION
  Report Type: Spontaneous
  Country: US (occurrence: None)
  Receive Date: 20130625
  Receipt Date: 20140903
  Transmission Date: 20150326
  Serious: Yes (Hospitalization, Other)
  Sender: FDA-Public Use
  Company Number: 2012US000806

PATIENT
  Age: 56 Year
  Sex: Female
  Weight: 113 kg

DRUGS (17)
  1. NOVOLOG MIX (INSULIN ASPART, INSULIN ASPART PROTAMINE) [Concomitant]
  2. URSODIOL (URSODIOL) [Concomitant]
  3. LEVOTHYROXINE (LEVOTHYROXINE SODIUM) [Concomitant]
  4. OXYCODONE [Concomitant]
     Active Substance: OXYCODONE
  5. CALCIUM (CALCIUM GLUCONATE) [Concomitant]
  6. GABAPENTIN (GABAPENTIN) [Concomitant]
     Active Substance: GABAPENTIN
  7. ASPIRIN (ACETYLSALICYLIC ACID) [Concomitant]
     Active Substance: ASPIRIN
  8. KEFLEX (CEFALEXIN MONOHYDRATE) [Concomitant]
  9. OMEGA 3 (FISH OIL) [Concomitant]
     Active Substance: OMEGA-3 FATTY ACIDS
  10. AMRIX (CYCLOBENZAPRINE HYDROCHLORIDE) [Concomitant]
  11. PONATINIB [Suspect]
     Active Substance: PONATINIB
     Indication: CHRONIC MYELOID LEUKAEMIA
     Route: 048
     Dates: start: 20110211, end: 20120807
  12. VERSED (MIDAZOLAM HYDROCHLORIDE) [Concomitant]
  13. CYMBALTA [Concomitant]
     Active Substance: DULOXETINE HYDROCHLORIDE
  14. PRILOSEC [Concomitant]
     Active Substance: OMEPRAZOLE MAGNESIUM
  15. OXYCONTIN [Concomitant]
     Active Substance: OXYCODONE HYDROCHLORIDE
  16. COMBIGAN (BRIMONIDINE TARTRATE, TIMOLOL MALEATE) [Concomitant]
  17. PLAVIX (CLOPIDOGREL BISULFATE) [Concomitant]

REACTIONS (13)
  - Pulmonary hypertension [None]
  - Cellulitis [None]
  - Osteomyelitis [None]
  - Leg amputation [None]
  - International normalised ratio decreased [None]
  - Activated partial thromboplastin time prolonged [None]
  - Pulmonary oedema [None]
  - Haematocrit decreased [None]
  - Prothrombin time prolonged [None]
  - Cardiac failure congestive [None]
  - Mitral valve calcification [None]
  - Disease progression [None]
  - Aortic stenosis [None]

NARRATIVE: CASE EVENT DATE: 20120806
